FAERS Safety Report 7262166-8 (Version None)
Quarter: 2011Q1

REPORT INFORMATION
  Report Type: 
  Country: None (occurrence: None)
  Receive Date: 20110130
  Receipt Date: 20101215
  Transmission Date: 20110831
  Serious: No
  Sender: FDA-Public Use
  Company Number: US-ABBOTT-10P-163-0691703-00

PATIENT
  Age: 40 Year
  Sex: Female

DRUGS (5)
  1. MULTI-VITAMIN [Concomitant]
     Indication: PRODUCT USED FOR UNKNOWN INDICATION
  2. EFFEXOR [Concomitant]
     Indication: DEPRESSION
     Route: 048
  3. BIOTIN [Concomitant]
     Indication: HAIR GROWTH ABNORMAL
  4. HUMIRA [Suspect]
     Indication: CROHN'S DISEASE
     Dates: start: 20100901
  5. BIOTIN [Concomitant]
     Indication: NAIL GROWTH ABNORMAL

REACTIONS (1)
  - GINGIVAL BLEEDING [None]
